FAERS Safety Report 24205972 (Version 2)
Quarter: 2024Q4

REPORT INFORMATION
  Report Type: Report from Study
  Country: US (occurrence: US)
  Receive Date: 20240813
  Receipt Date: 20241001
  Transmission Date: 20250114
  Serious: Yes (Death, Hospitalization, Other)
  Sender: GILEAD
  Company Number: US-GILEAD-2024-0683962

PATIENT
  Age: 29 Year
  Sex: Male
  Weight: 60.78 kg

DRUGS (2)
  1. AMBRISENTAN [Suspect]
     Active Substance: AMBRISENTAN
     Indication: Pulmonary arterial hypertension
     Dosage: 5 MG
     Route: 065
     Dates: start: 202311
  2. SILDENAFIL [Concomitant]
     Active Substance: SILDENAFIL
     Indication: Pulmonary arterial hypertension
     Dosage: 30 MG, TID
     Route: 065
     Dates: start: 202203

REACTIONS (5)
  - Death [Fatal]
  - Respiratory failure [Not Recovered/Not Resolved]
  - Anaemia [Not Recovered/Not Resolved]
  - Hepatic function abnormal [Not Recovered/Not Resolved]
  - Hypotension [Not Recovered/Not Resolved]
